FAERS Safety Report 4385927-1 (Version None)
Quarter: 2004Q2

REPORT INFORMATION
  Report Type: 
  Country: None (occurrence: None)
  Receive Date: 20040622
  Receipt Date: 20040608
  Transmission Date: 20050107
  Serious: Yes (Life-Threatening, Hospitalization)
  Sender: FDA-Public Use
  Company Number: EMADSS2002005636

PATIENT
  Age: 54 Year
  Sex: Male
  Weight: 61 kg

DRUGS (12)
  1. REMICADE [Suspect]
     Indication: HEPATITIS ALCOHOLIC
     Dosage: 10 MG/KG, 1 IN 1 AS NECESSARY , INTRAVENOUS DRIP
     Route: 041
     Dates: start: 20020527, end: 20020527
  2. REMICADE [Suspect]
     Indication: HEPATITIS ALCOHOLIC
     Dosage: 10 MG/KG, 1 IN 1 AS NECESSARY , INTRAVENOUS DRIP
     Route: 041
     Dates: start: 20020611, end: 20020611
  3. SOLUPRED (PREDNISOLONE SODIUM SULFOBENZOATE) UNSPECIFIED [Suspect]
     Indication: HEPATITIS C
     Dosage: 40 MG, 1 IN 1 DAY, ORAL
     Route: 048
     Dates: start: 20020527
  4. VITAMIN B1 TAB [Concomitant]
  5. VITAMIN B6 [Concomitant]
  6. NICOTINAMIDE [Concomitant]
  7. POTASSIUM CHLORIDE [Concomitant]
  8. OMEPRAZOLE [Concomitant]
  9. OXAZEPAM [Concomitant]
  10. FLUCONAZOLE [Concomitant]
  11. AUGMENTIN [Concomitant]
  12. OFLOXACIN [Concomitant]

REACTIONS (5)
  - DISEASE PROGRESSION [None]
  - ENTEROBACTER INFECTION [None]
  - ESCHERICHIA INFECTION [None]
  - ESCHERICHIA SEPSIS [None]
  - HEPATITIS ALCOHOLIC [None]
